FAERS Safety Report 16825823 (Version 1)
Quarter: 2019Q3

REPORT INFORMATION
  Report Type: Spontaneous
  Country: FR (occurrence: FR)
  Receive Date: 20190919
  Receipt Date: 20190919
  Transmission Date: 20191005
  Serious: Yes (Other)
  Sender: FDA-Public Use
  Company Number: FR-SA-2019SA255266

PATIENT
  Age: 23 Year
  Sex: Male
  Weight: 80 kg

DRUGS (3)
  1. LOVENOX [Suspect]
     Active Substance: ENOXAPARIN SODIUM
     Indication: THROMBOSIS PROPHYLAXIS
     Dosage: 4 000 UI ANTI-XA / 0.4 ML SOLUTION FOR INJECTION IN CARTRIDGE
     Route: 058
     Dates: start: 20190806, end: 20190809
  2. NEFOPAM MYLAN [Suspect]
     Active Substance: NEFOPAM
     Indication: PROCEDURAL PAIN
     Dosage: 602 MG, QD (STRENGTH: 20 MG/2 ML)
     Route: 042
     Dates: start: 20190805
  3. MORPHINE SALT NOT SPECIFIED [Suspect]
     Active Substance: MORPHINE
     Indication: PROCEDURAL PAIN
     Dosage: UNK UNK, UNK
     Route: 042
     Dates: start: 20190805, end: 20190807

REACTIONS (1)
  - Urinary retention [Recovered/Resolved]

NARRATIVE: CASE EVENT DATE: 20190807
